FAERS Safety Report 22268781 (Version 1)
Quarter: 2023Q2

REPORT INFORMATION
  Report Type: Spontaneous
  Country: US (occurrence: None)
  Receive Date: 20230501
  Receipt Date: 20230501
  Transmission Date: 20230722
  Serious: No
  Sender: FDA-Public Use
  Company Number: 2023A092087

PATIENT
  Age: 67 Year
  Sex: Female

DRUGS (3)
  1. BREZTRI [Suspect]
     Active Substance: BUDESONIDE\FORMOTEROL\GLYCOPYRROLATE
     Route: 055
  2. DUPIXENT [Suspect]
     Active Substance: DUPILUMAB
     Indication: Asthma
     Dosage: 300 MG EVERY OTHER WEEK
     Route: 058
     Dates: start: 202302
  3. PREDNIS0NE [Concomitant]

REACTIONS (4)
  - Vocal cord disorder [Unknown]
  - Wheezing [Recovering/Resolving]
  - Dysphonia [Unknown]
  - Drug ineffective [Unknown]

NARRATIVE: CASE EVENT DATE: 20230201
